FAERS Safety Report 26194853 (Version 2)
Quarter: 2025Q4

REPORT INFORMATION
  Report Type: Report from Study
  Country: CN (occurrence: CN)
  Receive Date: 20251224
  Receipt Date: 20251226
  Transmission Date: 20260117
  Serious: Yes (Other)
  Sender: PFIZER
  Company Number: CN-TAKEDA-2023TUS050794

PATIENT
  Age: 21 Year
  Sex: Female

DRUGS (40)
  1. BRENTUXIMAB VEDOTIN [Suspect]
     Active Substance: BRENTUXIMAB VEDOTIN
     Indication: Hodgkin^s disease
     Dosage: 100 MILLIGRAM, Q4WEEKS
     Route: 041
     Dates: start: 20230510
  2. BRENTUXIMAB VEDOTIN [Suspect]
     Active Substance: BRENTUXIMAB VEDOTIN
     Dosage: 100 MILLIGRAM, Q3WEEKS
     Route: 041
     Dates: start: 20231025
  3. CYTARABINE [Suspect]
     Active Substance: CYTARABINE
     Indication: Hodgkin^s disease
     Dosage: UNK
     Route: 065
  4. DEXAMETHASONE [Suspect]
     Active Substance: DEXAMETHASONE
     Indication: Hodgkin^s disease
     Dosage: 2.50 MILLIGRAM
     Route: 042
     Dates: start: 20230510, end: 20230510
  5. DEXAMETHASONE [Suspect]
     Active Substance: DEXAMETHASONE
     Indication: Prophylaxis
     Dosage: 30 MILLIGRAM, QD
     Route: 042
     Dates: start: 20230511, end: 20230513
  6. DEXAMETHASONE [Suspect]
     Active Substance: DEXAMETHASONE
     Dosage: 2.50 MILLIGRAM
     Route: 042
     Dates: start: 20230517, end: 20230517
  7. DEXAMETHASONE SODIUM PHOSPHATE [Suspect]
     Active Substance: DEXAMETHASONE SODIUM PHOSPHATE
     Indication: Hodgkin^s disease
     Dosage: 2.5 MILLIGRAM
     Route: 042
     Dates: start: 20230510, end: 20230510
  8. DEXAMETHASONE SODIUM PHOSPHATE [Suspect]
     Active Substance: DEXAMETHASONE SODIUM PHOSPHATE
     Indication: Antiviral prophylaxis
     Dosage: 30 MILLIGRAM, QD
     Route: 042
     Dates: start: 20230511, end: 20230513
  9. DEXAMETHASONE SODIUM PHOSPHATE [Suspect]
     Active Substance: DEXAMETHASONE SODIUM PHOSPHATE
     Dosage: 10 MILLIGRAM
     Route: 042
     Dates: start: 20230517, end: 20230517
  10. CISPLATIN [Suspect]
     Active Substance: CISPLATIN
     Indication: Prophylaxis
     Dosage: 150 MILLIGRAM
     Route: 042
     Dates: start: 20230511, end: 20230511
  11. PLATINOL [Suspect]
     Active Substance: CISPLATIN
     Indication: Hodgkin^s disease
     Dosage: UNK
     Route: 065
  12. METOPROLOL SUCCINATE [Concomitant]
     Active Substance: METOPROLOL SUCCINATE
     Indication: Cardiac disorder
     Dosage: 23.75 MILLIGRAM, QD
     Route: 048
     Dates: start: 20230504, end: 20230514
  13. MAGNESIUM ISOGLYCYRRHIZINATE [Concomitant]
     Active Substance: MAGNESIUM ISOGLYCYRRHIZINATE
     Indication: Prophylaxis
     Dosage: 40 MILLILITER, QD
     Route: 042
     Dates: start: 20230504, end: 20230523
  14. AMMONIUM GLYCYRRHIZATE\CYSTEINE [Concomitant]
     Active Substance: AMMONIUM GLYCYRRHIZATE\CYSTEINE
     Indication: Prophylaxis
     Dosage: 100 MILLILITER, QD
     Route: 042
     Dates: start: 20230504, end: 20230523
  15. VANCOMYCIN HYDROCHLORIDE [Concomitant]
     Active Substance: VANCOMYCIN HYDROCHLORIDE
     Indication: Pyrexia
     Dosage: 1000 MILLIGRAM, Q12H
     Route: 042
     Dates: start: 20230505, end: 20230511
  16. VANCOMYCIN HYDROCHLORIDE [Concomitant]
     Active Substance: VANCOMYCIN HYDROCHLORIDE
     Indication: Prophylaxis of nausea and vomiting
     Dosage: 1000 MILLIGRAM, Q12H
     Route: 042
     Dates: start: 20230513, end: 20230515
  17. BIAPENEM [Concomitant]
     Active Substance: BIAPENEM
     Indication: Pyrexia
     Dosage: 0.6 GRAM, Q12H
     Route: 042
     Dates: start: 20230506, end: 20230511
  18. BIAPENEM [Concomitant]
     Active Substance: BIAPENEM
     Dosage: 0.6 GRAM, Q12H
     Route: 042
     Dates: start: 20230513, end: 20230515
  19. HERBALS [Concomitant]
     Active Substance: HERBALS
     Indication: Pyrexia
     Dosage: 6 GRAM, TID
     Route: 048
     Dates: start: 20230508, end: 20230519
  20. LONG CHAIN FAT EMULSION INJECTION (OO) [Concomitant]
     Indication: Decreased appetite
     Dosage: 250 MILLILITER, QD
     Route: 042
     Dates: start: 20230509, end: 20230511
  21. FAMOTIDINE [Concomitant]
     Active Substance: FAMOTIDINE
     Indication: Prophylaxis
     Dosage: 20 MILLIGRAM, BID
     Route: 042
     Dates: start: 20230509, end: 20230523
  22. TROPISETRON HYDROCHLORIDE [Concomitant]
     Active Substance: TROPISETRON HYDROCHLORIDE
     Indication: Prophylaxis of nausea and vomiting
     Dosage: 5 MILLILITER, QD
     Route: 042
     Dates: start: 20230511, end: 20230514
  23. TROPISETRON HYDROCHLORIDE [Concomitant]
     Active Substance: TROPISETRON HYDROCHLORIDE
     Indication: Gastrointestinal motility disorder
     Dosage: 5 MILLILITER, QD
     Route: 042
     Dates: start: 20230515, end: 20230522
  24. VITAMIN B6 [Concomitant]
     Active Substance: PYRIDOXINE HYDROCHLORIDE
     Indication: Vitamin supplementation
     Dosage: 0.2 GRAM, QD
     Route: 042
     Dates: start: 20230511, end: 20230514
  25. SODIUM BICARBONATE [Concomitant]
     Active Substance: SODIUM BICARBONATE
     Indication: Blood alkalinisation therapy
     Dosage: 125 MILLILITER, QD
     Route: 042
     Dates: start: 20230511, end: 20230516
  26. DEXTROSE\SODIUM CHLORIDE [Concomitant]
     Active Substance: DEXTROSE\SODIUM CHLORIDE
     Dosage: 500 MILLILITER, QD
     Route: 003
     Dates: start: 20230511, end: 20230514
  27. MOSAPRIDE CITRATE [Concomitant]
     Active Substance: MOSAPRIDE CITRATE
     Indication: Allergy prophylaxis
     Dosage: 5 MILLIGRAM
     Route: 048
     Dates: start: 20230514, end: 20230514
  28. MOSAPRIDE CITRATE [Concomitant]
     Active Substance: MOSAPRIDE CITRATE
     Indication: Gastrointestinal motility disorder
     Dosage: 5 MILLIGRAM, TID
     Route: 048
     Dates: start: 20230515, end: 20230523
  29. PROMETHAZINE HYDROCHLORIDE [Concomitant]
     Active Substance: PROMETHAZINE HYDROCHLORIDE
     Indication: Allergy prophylaxis
     Dosage: 25 MILLIGRAM
     Route: 030
     Dates: start: 20230510, end: 20230510
  30. DEXAMETHASONE\TOBRAMYCIN [Concomitant]
     Active Substance: DEXAMETHASONE\TOBRAMYCIN
     Indication: Polyuria
     Dosage: 5 MILLILITER
     Route: 065
     Dates: start: 20230511, end: 20230511
  31. FUROSEMIDE [Concomitant]
     Active Substance: FUROSEMIDE
     Indication: Polyuria
     Dosage: 10 MILLIGRAM
     Route: 042
     Dates: start: 20230511, end: 20230511
  32. FUROSEMIDE [Concomitant]
     Active Substance: FUROSEMIDE
     Indication: Prophylaxis of nausea and vomiting
     Dosage: 10 MILLIGRAM
     Route: 042
     Dates: start: 20230512, end: 20230512
  33. METOCLOPRAMIDE HYDROCHLORIDE [Concomitant]
     Active Substance: METOCLOPRAMIDE HYDROCHLORIDE
     Indication: Gastrointestinal motility disorder
     Dosage: 10 MILLIGRAM
     Route: 030
     Dates: start: 20230513, end: 20230513
  34. DOMPERIDONE [Concomitant]
     Active Substance: DOMPERIDONE
     Indication: Prophylaxis
     Dosage: 10 MILLIGRAM
     Route: 048
     Dates: start: 20230514, end: 20230514
  35. ALUMINIUM CARBONATE/MAGNESIUM OXIDE [Concomitant]
     Indication: Lymphoma
     Dosage: 1000 MILLIGRAM
     Route: 048
     Dates: start: 20230515, end: 20230515
  36. MONTELUKAST SODIUM [Concomitant]
     Active Substance: MONTELUKAST SODIUM
     Indication: Antitussive therapy
     Dosage: 10 MILLIGRAM
     Route: 048
     Dates: start: 20230513, end: 20230519
  37. POTASSIUM CHLORIDE [Concomitant]
     Active Substance: POTASSIUM CHLORIDE
     Indication: Mineral supplementation
     Dosage: 1 GRAM, TID
     Route: 048
     Dates: start: 20230504, end: 20230523
  38. PREDNISOLONE [Concomitant]
     Active Substance: PREDNISOLONE
     Indication: Pyrexia
     Dosage: 60 MILLIGRAM, QD
     Route: 042
     Dates: start: 20230509, end: 20230511
  39. HYDROTALCITE [Concomitant]
     Active Substance: HYDROTALCITE
     Indication: Prophylaxis
     Dosage: 1000 MILLIGRAM
     Route: 048
     Dates: start: 20230515, end: 20230515
  40. IBUPROFEN [Concomitant]
     Active Substance: IBUPROFEN
     Indication: Pyrexia
     Dosage: 10 MILLILITER, SUSPENSION
     Route: 048
     Dates: start: 20230513, end: 20230513

REACTIONS (9)
  - Hypokalaemia [Recovered/Resolved]
  - Anaemia [Recovered/Resolved]
  - Platelet count decreased [Recovered/Resolved]
  - Vomiting [Recovered/Resolved]
  - Pyrexia [Recovered/Resolved]
  - Lymphocyte count decreased [Recovered/Resolved]
  - Blood bilirubin increased [Recovered/Resolved]
  - Neutrophil count decreased [Recovered/Resolved]
  - White blood cell count decreased [Not Recovered/Not Resolved]

NARRATIVE: CASE EVENT DATE: 20230517
